FAERS Safety Report 9521788 (Version 2)
Quarter: 2013Q3

REPORT INFORMATION
  Report Type: Report from Study
  Country: US (occurrence: US)
  Receive Date: 20130913
  Receipt Date: 20130925
  Transmission Date: 20140515
  Serious: No
  Sender: FDA-Public Use
  Company Number: US-VERTEX PHARMACEUTICALS INC-2013-009486

PATIENT
  Age: 63 Year
  Sex: Female
  Weight: 66.67 kg

DRUGS (3)
  1. VX-950 (TELAPREVIR) [Suspect]
     Indication: HEPATITIS C
     Dosage: 750 MG, TID
     Route: 048
     Dates: start: 20130829, end: 20130917
  2. RIBAVIRIN [Suspect]
     Indication: HEPATITIS C
     Dosage: 400MG AM, 600MG PM QD
     Route: 048
     Dates: start: 20130829, end: 20130917
  3. PEGASYS [Suspect]
     Indication: HEPATITIS C
     Dosage: 180 ?G, QW
     Route: 058
     Dates: start: 20130829, end: 20130912

REACTIONS (2)
  - Anorectal discomfort [Not Recovered/Not Resolved]
  - Platelet count decreased [Unknown]
